FAERS Safety Report 17033677 (Version 3)
Quarter: 2019Q4

REPORT INFORMATION
  Report Type: Spontaneous
  Country: DE (occurrence: DE)
  Receive Date: 20191114
  Receipt Date: 20191205
  Transmission Date: 20200122
  Serious: Yes (Hospitalization)
  Sender: FDA-Public Use
  Company Number: DE-BAUSCH-BL-2019-016842

PATIENT
  Age: 63 Year
  Sex: Female

DRUGS (3)
  1. FAVISTAN [Concomitant]
     Active Substance: METHIMAZOLE
     Indication: PRODUCT USED FOR UNKNOWN INDICATION
  2. LATANOPROST. [Suspect]
     Active Substance: LATANOPROST
     Indication: INTRAOCULAR PRESSURE INCREASED
     Dosage: DOSE: ONE (UNITS UNSPECIFIED), 1/DAY
     Route: 065
     Dates: start: 20190515, end: 201905
  3. LATANOPROST. [Suspect]
     Active Substance: LATANOPROST
     Indication: GLAUCOMA
     Dosage: DOSE: ONE (UNITS UNSPECIFIED), 1/DAY
     Route: 065
     Dates: start: 20190528, end: 2019

REACTIONS (7)
  - Sensation of foreign body [Recovering/Resolving]
  - Drug hypersensitivity [Not Recovered/Not Resolved]
  - Eye pain [Recovering/Resolving]
  - Lacrimation increased [Unknown]
  - Pain [Not Recovered/Not Resolved]
  - Eye allergy [Not Recovered/Not Resolved]
  - Eye irritation [Recovered/Resolved]

NARRATIVE: CASE EVENT DATE: 2019
